FAERS Safety Report 5392194-9 (Version None)
Quarter: 2007Q3

REPORT INFORMATION
  Report Type: 
  Country: None (occurrence: None)
  Receive Date: 20070719
  Receipt Date: 20061016
  Transmission Date: 20080115
  Serious: Yes (Death)
  Sender: FDA-Public Use
  Company Number: JP-SANOFI-SYNTHELABO-A01200608758

PATIENT
  Age: 15 Year
  Sex: Female

DRUGS (2)
  1. DIAZEPAM [Suspect]
     Indication: ANAESTHESIA
     Dosage: UNK
     Route: 065
  2. PENTAZOCINE LACTATE [Suspect]
     Indication: ANAESTHESIA
     Dosage: UNK
     Route: 065

REACTIONS (1)
  - RESPIRATORY DEPRESSION [None]
